FAERS Safety Report 22622388 (Version 2)
Quarter: 2024Q4

REPORT INFORMATION
  Report Type: Spontaneous
  Country: BR (occurrence: BR)
  Receive Date: 20230620
  Receipt Date: 20241016
  Transmission Date: 20250115
  Serious: Yes (Other)
  Sender: CELLTRION
  Company Number: BR-CELLTRION INC.-2023BR006943

PATIENT

DRUGS (5)
  1. INFLIXIMAB [Suspect]
     Active Substance: INFLIXIMAB
     Indication: Rheumatoid arthritis
     Dosage: 3 AMPOULES EVERY MONTH
     Route: 042
     Dates: start: 20221122
  2. INFLIXIMAB [Suspect]
     Active Substance: INFLIXIMAB
     Dosage: THREE INFUSIONS
  3. LOSARTAN [Concomitant]
     Active Substance: LOSARTAN
     Indication: Hypertension
     Dosage: 2 PILLS A DAY (START: 3 YEARS AGO)
     Route: 048
  4. ROSUVASTATIN [Concomitant]
     Active Substance: ROSUVASTATIN
     Indication: Hypercholesterolaemia
     Dosage: 1 PILL A DAY (START: 3 YEARS AGO)
     Route: 048
  5. UPADACITINIB [Concomitant]
     Active Substance: UPADACITINIB
     Indication: Rheumatoid arthritis
     Dosage: 15 MG, 1 TABLET A DAY

REACTIONS (28)
  - Arthritis [Unknown]
  - COVID-19 [Unknown]
  - Malaise [Unknown]
  - Malaise [Unknown]
  - Malaise [Unknown]
  - Malaise [Unknown]
  - Malaise [Recovered/Resolved]
  - Somnolence [Unknown]
  - Somnolence [Unknown]
  - Peripheral swelling [Unknown]
  - Pain in extremity [Unknown]
  - Pain in extremity [Unknown]
  - Insomnia [Unknown]
  - Dyspnoea [Unknown]
  - Inflammation [Unknown]
  - Back pain [Unknown]
  - Dengue fever [Unknown]
  - Joint swelling [Unknown]
  - Cough [Unknown]
  - Asthenia [Unknown]
  - Blood pressure decreased [Unknown]
  - Memory impairment [Unknown]
  - Vision blurred [Unknown]
  - Hypoaesthesia [Unknown]
  - Therapy interrupted [Unknown]
  - Product prescribing issue [Unknown]
  - Intentional product use issue [Unknown]
  - Intentional dose omission [Unknown]

NARRATIVE: CASE EVENT DATE: 20221122
